FAERS Safety Report 5175082-2 (Version None)
Quarter: 2006Q4

REPORT INFORMATION
  Report Type: 
  Country: None (occurrence: None)
  Receive Date: 20061214
  Receipt Date: 20060525
  Transmission Date: 20070319
  Serious: No
  Sender: FDA-Public Use
  Company Number: US-AMGEN-KDL181007

PATIENT
  Sex: Female

DRUGS (3)
  1. ENBREL [Suspect]
     Indication: RHEUMATOID ARTHRITIS
     Route: 058
     Dates: start: 20050615
  2. PLAQUENIL [Concomitant]
     Route: 048
     Dates: start: 20050727
  3. METHOTREXATE [Concomitant]
     Route: 048
     Dates: start: 20050101

REACTIONS (5)
  - ASTHMA [None]
  - CONDITION AGGRAVATED [None]
  - DIVERTICULITIS [None]
  - INJECTION SITE BRUISING [None]
  - UPPER RESPIRATORY TRACT INFECTION [None]
